FAERS Safety Report 5674386-4 (Version None)
Quarter: 2008Q1

REPORT INFORMATION
  Report Type: 
  Country: None (occurrence: None)
  Receive Date: 20080320
  Receipt Date: 20071211
  Transmission Date: 20080703
  Serious: No
  Sender: FDA-Public Use
  Company Number: US-BAYER-200716735NA

PATIENT
  Age: 41 Year
  Sex: Female
  Weight: 107 kg

DRUGS (4)
  1. MIRENA [Suspect]
     Indication: CONTRACEPTION
     Route: 015
     Dates: start: 20070401
  2. ORTHO TRI-CYCLEN [Concomitant]
     Indication: ORAL CONTRACEPTION
     Dates: start: 20050101, end: 20070101
  3. ATENOLOL [Concomitant]
     Indication: HYPERTENSION
     Dates: start: 20070301
  4. NEXIUM [Concomitant]
     Indication: GASTROOESOPHAGEAL REFLUX DISEASE

REACTIONS (1)
  - ALOPECIA [None]
